FAERS Safety Report 10732861 (Version 1)
Quarter: 2015Q1

REPORT INFORMATION
  Report Type: Spontaneous
  Country: IE (occurrence: None)
  Receive Date: 20150120
  Receipt Date: 20150120
  Transmission Date: 20150721
  Serious: Yes (Hospitalization)
  Sender: FDA-Public Use
  Company Number: INT_00651_2015

PATIENT
  Age: 5 Year
  Sex: Female

DRUGS (1)
  1. CISPLATIN (CISPLATIN) (HQ SPECIALTY) [Suspect]
     Active Substance: CISPLATIN
     Indication: ASTROCYTOMA
     Dosage: DF

REACTIONS (3)
  - Cardiac amyloidosis [None]
  - Pleural effusion [None]
  - CSF pressure increased [None]
